FAERS Safety Report 13062820 (Version 2)
Quarter: 2017Q1

REPORT INFORMATION
  Report Type: Report from Study
  Country: US (occurrence: US)
  Receive Date: 20161226
  Receipt Date: 20170126
  Transmission Date: 20170428
  Serious: Yes (Life-Threatening, Other)
  Sender: FDA-Public Use
  Company Number: PHEH2016US033518

PATIENT
  Sex: Female

DRUGS (2)
  1. VOTRIENT [Suspect]
     Active Substance: PAZOPANIB HYDROCHLORIDE
     Indication: RENAL CANCER
     Dosage: UNK UNK, BID
     Route: 048
     Dates: end: 20161211
  2. VOTRIENT [Suspect]
     Active Substance: PAZOPANIB HYDROCHLORIDE
     Indication: METASTATIC RENAL CELL CARCINOMA

REACTIONS (6)
  - Abasia [Unknown]
  - Blood count abnormal [Unknown]
  - Hepatic failure [Unknown]
  - Hepatic enzyme increased [Unknown]
  - Feeding disorder [Unknown]
  - Asthenia [Unknown]
